FAERS Safety Report 10028593 (Version 3)
Quarter: 2014Q2

REPORT INFORMATION
  Report Type: Report from Study
  Country: US (occurrence: US)
  Receive Date: 20140321
  Receipt Date: 20140403
  Transmission Date: 20141212
  Serious: Yes (Hospitalization, Congenital Anomaly)
  Sender: FDA-Public Use
  Company Number: US-VIIV HEALTHCARE LIMITED-A1065268A

PATIENT
  Age: 0 Year
  Sex: Male
  Weight: 2.9 kg

DRUGS (4)
  1. COMBIVIR [Suspect]
     Indication: HIV INFECTION
     Dosage: 2TAB PER DAY
     Route: 064
     Dates: start: 20131107
  2. NORVIR [Suspect]
     Indication: HIV INFECTION
     Dosage: 100MG PER DAY
     Route: 064
     Dates: start: 20131107, end: 20131212
  3. REYATAZ [Suspect]
     Indication: HIV INFECTION
     Dosage: 300MG PER DAY
     Route: 064
     Dates: start: 20131107, end: 20131212
  4. ISENTRESS [Suspect]
     Indication: HIV INFECTION
     Dosage: 800MG PER DAY
     Route: 064
     Dates: start: 20131212

REACTIONS (5)
  - Hypotonia neonatal [Recovering/Resolving]
  - Ear malformation [Unknown]
  - Supraventricular tachycardia [Recovering/Resolving]
  - Lid lag [Recovering/Resolving]
  - Foetal exposure during pregnancy [Unknown]
